FAERS Safety Report 5210329-5 (Version None)
Quarter: 2007Q1

REPORT INFORMATION
  Report Type: 
  Country: None (occurrence: None)
  Receive Date: 20070117
  Receipt Date: 20070108
  Transmission Date: 20070707
  Serious: Yes (Other)
  Sender: FDA-Public Use
  Company Number: US-BAYER-200614709BCC

PATIENT
  Age: 60 Year
  Sex: Female
  Weight: 73 kg

DRUGS (12)
  1. ALEVE [Suspect]
     Indication: ARTHRALGIA
     Dosage: TOTAL DAILY DOSE: 440 MG  UNIT DOSE: 220 MG
     Route: 048
     Dates: start: 19920101, end: 20031203
  2. ACTOS [Concomitant]
     Indication: DIABETES MELLITUS NON-INSULIN-DEPENDENT
     Dosage: TOTAL DAILY DOSE: 45 MG  UNIT DOSE: 45 MG
     Dates: start: 19980101
  3. GLYBURIDE [Concomitant]
     Indication: DIABETES MELLITUS NON-INSULIN-DEPENDENT
     Dosage: TOTAL DAILY DOSE: 3 MG  UNIT DOSE: 6 MG
     Dates: start: 19980101
  4. ZETIA [Concomitant]
     Indication: HYPERLIPIDAEMIA
  5. LESCOL [Concomitant]
     Indication: HYPERLIPIDAEMIA
  6. DIOVAN [Concomitant]
     Dosage: TOTAL DAILY DOSE: 80 MG  UNIT DOSE: 80 MG
     Dates: start: 19980101
  7. NORVASC [Concomitant]
     Dosage: TOTAL DAILY DOSE: 10 MG  UNIT DOSE: 10 MG
     Dates: start: 19980101
  8. SODIUM BICARBONATE [Concomitant]
     Dosage: UNIT DOSE: 650 MG
     Dates: start: 20030101
  9. VISTARIL [Concomitant]
     Dosage: UNIT DOSE: 50 MG
     Dates: start: 19720101
  10. WELLBUTRIN [Concomitant]
     Dosage: TOTAL DAILY DOSE: 300 MG  UNIT DOSE: 300 MG
     Dates: start: 20000101
  11. HYDROCHLOROTHIAZIDE [Concomitant]
     Dosage: TOTAL DAILY DOSE: 25 MG  UNIT DOSE: 25 MG
  12. BENICAR [Concomitant]
     Dosage: TOTAL DAILY DOSE: 20 MG  UNIT DOSE: 20 MG

REACTIONS (5)
  - BLOOD CREATININE INCREASED [None]
  - NEPHRITIS INTERSTITIAL [None]
  - NEPHROPATHY [None]
  - RENAL ARTERIOSCLEROSIS [None]
  - RENAL FAILURE [None]
